FAERS Safety Report 6542965-8 (Version None)
Quarter: 2010Q1

REPORT INFORMATION
  Report Type: 
  Country: None (occurrence: None)
  Receive Date: 20100114
  Receipt Date: 20100106
  Transmission Date: 20100710
  Serious: Yes (Other)
  Sender: FDA-Public Use
  Company Number: 2010SP001278

PATIENT
  Age: 48 Year
  Sex: Female

DRUGS (4)
  1. REMERON [Suspect]
     Indication: DEPRESSION
     Dosage: 15 MG;HS;PO
     Route: 048
     Dates: start: 20080701, end: 20090101
  2. PREGABALIN [Suspect]
     Indication: AFFECTIVE DISORDER
     Dosage: 25 MG;QD;PO - 25 MG;QD;PO - 50 MG;QD;PO
     Route: 048
     Dates: end: 20091230
  3. PREGABALIN [Suspect]
     Indication: AFFECTIVE DISORDER
     Dosage: 25 MG;QD;PO - 25 MG;QD;PO - 50 MG;QD;PO
     Route: 048
     Dates: start: 20081204
  4. PREGABALIN [Suspect]
     Indication: AFFECTIVE DISORDER
     Dosage: 25 MG;QD;PO - 25 MG;QD;PO - 50 MG;QD;PO
     Route: 048
     Dates: start: 20090315

REACTIONS (6)
  - COGNITIVE DISORDER [None]
  - DRUG INEFFECTIVE [None]
  - DYSPNOEA [None]
  - FATIGUE [None]
  - SUICIDAL IDEATION [None]
  - WEIGHT INCREASED [None]
